FAERS Safety Report 6183152-5 (Version None)
Quarter: 2009Q2

REPORT INFORMATION
  Report Type: 
  Country: None (occurrence: None)
  Receive Date: 20090506
  Receipt Date: 20090423
  Transmission Date: 20091009
  Serious: Yes (Disabling)
  Sender: FDA-Public Use
  Company Number: 2009-0020

PATIENT
  Age: 51 Year
  Sex: Male

DRUGS (1)
  1. SOMATULINE AUTOGEL (LANREOTIDE ACETATE) (LANREOTIDE ACETATE) [Suspect]
     Indication: ACROMEGALY
     Dosage: (60 MG, 1IN 3 M)  SUBCUTANEOUS; SINGLE DOSE
     Route: 058
     Dates: start: 20081103, end: 20081103

REACTIONS (3)
  - ABDOMINAL DISCOMFORT [None]
  - ABDOMINAL DISTENSION [None]
  - DIARRHOEA [None]
